FAERS Safety Report 9459557 (Version 8)
Quarter: 2014Q1

REPORT INFORMATION
  Report Type: Spontaneous
  Country: US (occurrence: US)
  Receive Date: 20130815
  Receipt Date: 20140305
  Transmission Date: 20141002
  Serious: Yes (Other)
  Sender: FDA-Public Use
  Company Number: US-PFIZER INC-2013234796

PATIENT
  Age: 72 Year
  Sex: Male

DRUGS (9)
  1. SUTENT [Suspect]
     Indication: RENAL CANCER
     Dosage: 37.5 MG, DAILY (IN 3 DIVIDED DOSES OF 12.5 MG EACH) (DIVIDED DOSE DAILY 28 DAYS ON + 14 DAYS OFF)
     Dates: start: 20130723
  2. DILTIAZEM [Concomitant]
     Dosage: UNK
  3. EPLERENONE [Concomitant]
     Dosage: UNK
  4. LEVOTHYROXINE [Concomitant]
     Dosage: UNK
  5. ASPIRIN [Concomitant]
     Dosage: 81 MG, DAILY
  6. AMITRIPTYLINE HYDROCHLORIDE [Concomitant]
     Dosage: UNK
  7. DICYCLOMINE HYDROCHLORIDE [Concomitant]
     Dosage: UNK
  8. MIRTAZAPINE [Concomitant]
     Dosage: UNK
  9. SIMVASTATIN [Concomitant]
     Dosage: UNK

REACTIONS (19)
  - Silent myocardial infarction [Unknown]
  - Left atrial dilatation [Unknown]
  - Disease progression [Unknown]
  - Renal cancer [Unknown]
  - Oral pain [Not Recovered/Not Resolved]
  - Glossodynia [Not Recovered/Not Resolved]
  - Fatigue [Not Recovered/Not Resolved]
  - Ageusia [Not Recovered/Not Resolved]
  - Paraesthesia [Unknown]
  - Diarrhoea [Unknown]
  - Constipation [Unknown]
  - Pain in extremity [Not Recovered/Not Resolved]
  - Pruritus [Unknown]
  - Dandruff [Unknown]
  - Skin disorder [Unknown]
  - Hair disorder [Unknown]
  - Liver function test abnormal [Unknown]
  - Gastrooesophageal reflux disease [Unknown]
  - Dry skin [Unknown]
